FAERS Safety Report 18157644 (Version 1)
Quarter: 2020Q3

REPORT INFORMATION
  Report Type: Spontaneous
  Country: US (occurrence: US)
  Receive Date: 20200817
  Receipt Date: 20200817
  Transmission Date: 20201103
  Serious: Yes (Disabling, Other)
  Sender: FDA-Public Use
  Company Number: US-PFIZER INC-2020313120

PATIENT
  Age: 51 Year
  Sex: Female

DRUGS (6)
  1. BOSULIF [Suspect]
     Active Substance: BOSUTINIB MONOHYDRATE
     Indication: PHILADELPHIA CHROMOSOME POSITIVE
  2. GLEEVEC [Suspect]
     Active Substance: IMATINIB MESYLATE
     Dosage: UNK
  3. ICLUSIG [Suspect]
     Active Substance: PONATINIB
     Dosage: UNK
  4. TASIGNA [Suspect]
     Active Substance: NILOTINIB
     Dosage: UNK
  5. SPRYCEL [Suspect]
     Active Substance: DASATINIB
     Dosage: UNK
  6. BOSULIF [Suspect]
     Active Substance: BOSUTINIB MONOHYDRATE
     Indication: CHRONIC MYELOID LEUKAEMIA
     Dosage: UNK

REACTIONS (11)
  - Bone pain [Unknown]
  - Cognitive disorder [Unknown]
  - Arthralgia [Unknown]
  - Rash [Unknown]
  - Decreased appetite [Unknown]
  - Major depression [Unknown]
  - Constipation [Unknown]
  - Pain in extremity [Unknown]
  - Abdominal pain [Unknown]
  - Vision blurred [Unknown]
  - Hypertension [Unknown]
